FAERS Safety Report 5315203-1 (Version None)
Quarter: 2007Q2

REPORT INFORMATION
  Report Type: 
  Country: None (occurrence: None)
  Receive Date: 20070502
  Receipt Date: 20070420
  Transmission Date: 20071010
  Serious: Yes (Other)
  Sender: FDA-Public Use
  Company Number: JP-PFIZER INC-2007017063

PATIENT
  Sex: Female
  Weight: 50.1 kg

DRUGS (2)
  1. LIPITOR [Suspect]
     Indication: HYPERLIPIDAEMIA
     Dosage: DAILY DOSE:5MG
     Route: 048
  2. NU LOTAN [Suspect]
     Indication: HYPERTENSION
     Route: 048

REACTIONS (1)
  - PANCYTOPENIA [None]
